FAERS Safety Report 4736125-0 (Version None)
Quarter: 2005Q3

REPORT INFORMATION
  Report Type: 
  Country: None (occurrence: None)
  Receive Date: 20050729
  Receipt Date: 20050407
  Transmission Date: 20060218
  Serious: Yes (Disabling)
  Sender: FDA-Public Use
  Company Number: GXBR2005US00687

PATIENT
  Age: 66 Year
  Sex: Female
  Weight: 46.7 kg

DRUGS (6)
  1. RIBAVIRIN [Suspect]
     Indication: HEPATITIS C
     Dosage: 200MG QAM, 400MG QPM, ORAL
     Route: 048
     Dates: start: 20041108
  2. PEGINTERFERON ALFA-2B [Concomitant]
  3. ZOLOFT [Concomitant]
  4. FOSAMAX [Concomitant]
  5. PROCRIT /00909301/ (ERYTHROPOIETIN) [Concomitant]
  6. MULTIVITAMINS (ASCORBIC ACID, ERGOCALCIFEROL, FOLIC ACID, NICOTINAMIDE [Concomitant]

REACTIONS (1)
  - DEAFNESS BILATERAL [None]
